FAERS Safety Report 12204767 (Version 2)
Quarter: 2016Q2

REPORT INFORMATION
  Report Type: Spontaneous
  Country: US (occurrence: US)
  Receive Date: 20160323
  Receipt Date: 20160426
  Transmission Date: 20160815
  Serious: Yes (Hospitalization)
  Sender: FDA-Public Use
  Company Number: US-PFIZER INC-2016153316

PATIENT
  Sex: Female

DRUGS (1)
  1. SERTRALINE HCL [Suspect]
     Active Substance: SERTRALINE HYDROCHLORIDE
     Dosage: UNK (ON AND OFF)
     Dates: start: 1994

REACTIONS (5)
  - Feeling abnormal [Unknown]
  - Withdrawal syndrome [Unknown]
  - Speech disorder [Unknown]
  - Crying [Unknown]
  - Hormone level abnormal [Unknown]
